FAERS Safety Report 19830951 (Version 1)
Quarter: 2021Q3

REPORT INFORMATION
  Report Type: Spontaneous
  Country: US (occurrence: US)
  Receive Date: 20210914
  Receipt Date: 20210914
  Transmission Date: 20211014
  Serious: No
  Sender: FDA-Public Use
  Company Number: US-JACOBUS PHARMACEUTICAL COMPANY, INC.-2118351

PATIENT
  Age: 8 Year
  Sex: Male

DRUGS (5)
  1. PYRIDOSTIGMINE BROMIDE. [Concomitant]
     Active Substance: PYRIDOSTIGMINE BROMIDE
  2. ALBUTEROL. [Concomitant]
     Active Substance: ALBUTEROL
  3. SUCCINYLCHOLINE CHLORIDE. [Concomitant]
     Active Substance: SUCCINYLCHOLINE CHLORIDE
  4. RUZURGI [Suspect]
     Active Substance: AMIFAMPRIDINE
     Indication: CONGENITAL MYASTHENIC SYNDROME
     Route: 048
     Dates: start: 20200207
  5. CLARITIN [Concomitant]
     Active Substance: LORATADINE

REACTIONS (1)
  - Hypoaesthesia [Recovered/Resolved]
